FAERS Safety Report 7510225-4 (Version None)
Quarter: 2011Q2

REPORT INFORMATION
  Report Type: 
  Country: None (occurrence: None)
  Receive Date: 20110527
  Receipt Date: 20110513
  Transmission Date: 20111010
  Serious: Yes (Hospitalization, Other)
  Sender: FDA-Public Use
  Company Number: AR-ABBOTT-11P-007-0724029-00

PATIENT
  Sex: Female

DRUGS (2)
  1. HUMIRA [Suspect]
     Indication: RHEUMATOID ARTHRITIS
     Route: 058
     Dates: start: 20080101, end: 20110201
  2. METHOTREXATE [Concomitant]
     Indication: PRODUCT USED FOR UNKNOWN INDICATION

REACTIONS (10)
  - INTESTINAL CYST [None]
  - KNEE ARTHROPLASTY [None]
  - HIP ARTHROPLASTY [None]
  - OVARIAN CYST [None]
  - OOPHORECTOMY [None]
  - ADENOCARCINOMA [None]
  - OVARIAN CANCER [None]
  - ARTHRALGIA [None]
  - NEOPLASM PROGRESSION [None]
  - INFECTION [None]
